FAERS Safety Report 5060367-0 (Version None)
Quarter: 2006Q3

REPORT INFORMATION
  Report Type: 
  Country: None (occurrence: None)
  Receive Date: 20060720
  Receipt Date: 20060713
  Transmission Date: 20061208
  Serious: Yes (Hospitalization)
  Sender: FDA-Public Use
  Company Number: 200610452BFR

PATIENT
  Age: 76 Year
  Sex: Male

DRUGS (4)
  1. CIFLOX (CIPROFLOXACIN) [Suspect]
     Indication: KLEBSIELLA INFECTION
     Dosage: ORAL
     Route: 048
     Dates: start: 20060328, end: 20060331
  2. CIFLOX (CIPROFLOXACIN) [Suspect]
     Indication: PROSTATITIS
     Dosage: ORAL
     Route: 048
     Dates: start: 20060328, end: 20060331
  3. FLUCONAZOLE [Suspect]
     Indication: KLEBSIELLA INFECTION
     Dosage: ORAL
     Route: 048
     Dates: start: 20060328, end: 20060331
  4. FLUCONAZOLE [Suspect]
     Indication: PROSTATITIS
     Dosage: ORAL
     Route: 048
     Dates: start: 20060328, end: 20060331

REACTIONS (7)
  - ANAEMIA [None]
  - HAEMATURIA [None]
  - HAEMOLYTIC URAEMIC SYNDROME [None]
  - PROSTATIC SPECIFIC ANTIGEN INCREASED [None]
  - RECTAL HAEMORRHAGE [None]
  - RENAL FAILURE ACUTE [None]
  - THROMBOCYTOPENIA [None]
